FAERS Safety Report 7379285-8 (Version None)
Quarter: 2011Q1

REPORT INFORMATION
  Report Type: 
  Country: None (occurrence: None)
  Receive Date: 20110329
  Receipt Date: 20101119
  Transmission Date: 20110831
  Serious: Yes (Death, Hospitalization)
  Sender: FDA-Public Use
  Company Number: FR-AMGEN-KDC435869

PATIENT
  Age: 56 Year
  Sex: Male

DRUGS (3)
  1. PANITUMUMAB [Suspect]
     Indication: COLORECTAL CANCER
     Dosage: 558 MG, Q2WK
     Route: 042
     Dates: start: 20100622, end: 20100803
  2. HEXOMEDINE                         /00799702/ [Concomitant]
     Dosage: UNK
     Dates: start: 20100803
  3. MINOCYCLINE                        /00232402/ [Concomitant]
     Dosage: UNK
     Route: 048
     Dates: start: 20100630, end: 20100802

REACTIONS (3)
  - HAEMORRHAGE [None]
  - COLORECTAL CANCER [None]
  - RED BLOOD CELL COUNT DECREASED [None]
